FAERS Safety Report 19522581 (Version 1)
Quarter: 2021Q3

REPORT INFORMATION
  Report Type: Spontaneous
  Country: DE (occurrence: DE)
  Receive Date: 20210712
  Receipt Date: 20210712
  Transmission Date: 20211014
  Serious: Yes (Hospitalization)
  Sender: FDA-Public Use
  Company Number: DE-NEUROCRINE BIOSCIENCES INC.-2021NBI03714

PATIENT

DRUGS (2)
  1. ONGENTYS [Suspect]
     Active Substance: OPICAPONE
     Indication: PARKINSON^S DISEASE
     Dosage: UNK, UNKNOWN
     Route: 065
  2. ONGENTYS [Suspect]
     Active Substance: OPICAPONE
     Dosage: DOUBLED DOSAGE PLUS THREE.
     Route: 048

REACTIONS (3)
  - Disease progression [Unknown]
  - Off label use [Unknown]
  - Overdose [Unknown]
